FAERS Safety Report 18955844 (Version 1)
Quarter: 2021Q1

REPORT INFORMATION
  Report Type: Spontaneous
  Country: US (occurrence: US)
  Receive Date: 20210301
  Receipt Date: 20210301
  Transmission Date: 20210420
  Serious: No
  Sender: FDA-Public Use
  Company Number: US-ABBVIE-20K-163-3400119-00

PATIENT
  Sex: Male

DRUGS (3)
  1. TESTOSTERONE IMPLT [Suspect]
     Active Substance: TESTOSTERONE
     Indication: PRODUCT USED FOR UNKNOWN INDICATION
     Route: 050
  2. ANDROGEL [Suspect]
     Active Substance: TESTOSTERONE
     Indication: BLOOD TESTOSTERONE DECREASED
     Route: 061
  3. TESTOSTERONE. [Suspect]
     Active Substance: TESTOSTERONE
     Indication: PRODUCT USED FOR UNKNOWN INDICATION
     Dosage: CONTAINED THIMEROSAL
     Route: 050

REACTIONS (9)
  - Insomnia [Unknown]
  - Injection site pain [Unknown]
  - Fatigue [Unknown]
  - Overdose [Recovered/Resolved]
  - Malaise [Unknown]
  - Loss of libido [Unknown]
  - Aggression [Recovered/Resolved]
  - Atrial fibrillation [Unknown]
  - Drug ineffective [Not Recovered/Not Resolved]
